FAERS Safety Report 18597942 (Version 1)
Quarter: 2020Q4

REPORT INFORMATION
  Report Type: Spontaneous
  Country: US (occurrence: US)
  Receive Date: 20201209
  Receipt Date: 20201209
  Transmission Date: 20210114
  Serious: No
  Sender: FDA-Public Use
  Company Number: US-AMGEN-USASP2020197832

PATIENT
  Age: 50 Year
  Sex: Female

DRUGS (1)
  1. ENBREL [Suspect]
     Active Substance: ETANERCEPT
     Indication: PSORIATIC ARTHROPATHY
     Dosage: 50 MILLIGRAM, QWK
     Route: 058

REACTIONS (5)
  - Injection site bruising [Recovered/Resolved]
  - Wrong technique in product usage process [Unknown]
  - Injection site pain [Unknown]
  - Injection site haemorrhage [Unknown]
  - Muscle spasms [Unknown]

NARRATIVE: CASE EVENT DATE: 20201106
